FAERS Safety Report 5647160-2 (Version None)
Quarter: 2008Q1

REPORT INFORMATION
  Report Type: 
  Country: None (occurrence: None)
  Receive Date: 20080303
  Receipt Date: 20080225
  Transmission Date: 20080703
  Serious: Yes (Hospitalization, Disabling)
  Sender: FDA-Public Use
  Company Number: US-MERCK-98051829

PATIENT
  Age: 73 Year
  Sex: Male
  Weight: 70 kg

DRUGS (15)
  1. ZOCOR [Suspect]
     Indication: HYPERCHOLESTEROLAEMIA
     Route: 048
     Dates: start: 19980408, end: 19980701
  2. ZOCOR [Suspect]
     Route: 048
  3. ZOCOR [Suspect]
     Route: 048
     Dates: start: 20060101, end: 20080101
  4. ZOCOR [Suspect]
     Route: 065
     Dates: start: 20080215
  5. ZOCOR [Suspect]
     Indication: HYPERLIPIDAEMIA
     Route: 048
     Dates: start: 19980408, end: 19980701
  6. ZOCOR [Suspect]
     Route: 048
  7. ZOCOR [Suspect]
     Route: 048
     Dates: start: 20060101, end: 20080101
  8. ZOCOR [Suspect]
     Route: 065
     Dates: start: 20080215
  9. BIAXIN [Concomitant]
     Route: 065
  10. COLESTID [Concomitant]
     Route: 065
     Dates: start: 19880101
  11. LORAZEPAM [Concomitant]
     Route: 065
  12. LEVAQUIN [Suspect]
     Route: 065
  13. PRINIVIL [Concomitant]
     Route: 048
  14. METOPROLOL [Concomitant]
     Route: 065
  15. TETRACYCLINE [Concomitant]
     Route: 065

REACTIONS (12)
  - ACUTE SINUSITIS [None]
  - ASTHENIA [None]
  - BLOOD CHOLESTEROL INCREASED [None]
  - BLOOD CREATINE PHOSPHOKINASE INCREASED [None]
  - BLOOD LACTATE DEHYDROGENASE INCREASED [None]
  - INFLUENZA [None]
  - LOW DENSITY LIPOPROTEIN INCREASED [None]
  - MEDICATION ERROR [None]
  - MUSCLE SPASMS [None]
  - MYOSITIS [None]
  - PLATELET COUNT DECREASED [None]
  - RED BLOOD CELL SEDIMENTATION RATE INCREASED [None]
